FAERS Safety Report 5742713-5 (Version None)
Quarter: 2008Q2

REPORT INFORMATION
  Report Type: 
  Country: None (occurrence: None)
  Receive Date: 20080519
  Receipt Date: 20080513
  Transmission Date: 20081010
  Serious: Yes (Other)
  Sender: FDA-Public Use
  Company Number: B0518020A

PATIENT
  Age: 79 Year
  Sex: Male

DRUGS (4)
  1. PAXIL [Suspect]
     Indication: DEPRESSION
     Route: 048
  2. SULPIRIDE [Concomitant]
     Indication: DEPRESSION
     Route: 065
  3. AMOXAPINE [Concomitant]
     Indication: DEPRESSION
     Route: 048
  4. MILNACIPRAN HYDROCHLORIDE [Concomitant]
     Route: 048

REACTIONS (6)
  - BLOOD OSMOLARITY DECREASED [None]
  - BLOOD SODIUM DECREASED [None]
  - DISORIENTATION [None]
  - INAPPROPRIATE ANTIDIURETIC HORMONE SECRETION [None]
  - MALAISE [None]
  - SOMNOLENCE [None]
